FAERS Safety Report 20857666 (Version 2)
Quarter: 2022Q2

REPORT INFORMATION
  Report Type: Report from Study
  Country: FR (occurrence: FR)
  Receive Date: 20220521
  Receipt Date: 20220621
  Transmission Date: 20220721
  Serious: Yes (Other)
  Sender: FDA-Public Use
  Company Number: FR-NOVARTISPH-NVSC2022FR114614

PATIENT
  Age: 82 Year
  Sex: Male
  Weight: 83 kg

DRUGS (3)
  1. TABRECTA [Suspect]
     Active Substance: CAPMATINIB
     Indication: Lung adenocarcinoma
     Dosage: 2 DOSAGE FORM (2 DOSES OF 400MG)
     Route: 048
     Dates: start: 20220418, end: 20220505
  2. TABRECTA [Suspect]
     Active Substance: CAPMATINIB
     Indication: Metastases to central nervous system
  3. TABRECTA [Suspect]
     Active Substance: CAPMATINIB
     Indication: Methylenetetrahydrofolate reductase gene mutation

REACTIONS (4)
  - Myalgia [Recovered/Resolved]
  - Headache [Recovered/Resolved]
  - Asthenia [Recovered/Resolved]
  - Diarrhoea [Recovered/Resolved]

NARRATIVE: CASE EVENT DATE: 20220422
